FAERS Safety Report 8494557-1 (Version None)
Quarter: 2012Q3

REPORT INFORMATION
  Report Type: 
  Country: None (occurrence: None)
  Receive Date: 20120709
  Receipt Date: 20120705
  Transmission Date: 20120928
  Serious: Yes (Other)
  Sender: FDA-Public Use
  Company Number: PHHY2012NL057883

PATIENT
  Sex: Male
  Weight: 67 kg

DRUGS (1)
  1. CARBAMAZEPINE [Suspect]
     Dosage: 200 MG, BID
     Route: 048
     Dates: start: 20120612, end: 20120626

REACTIONS (10)
  - OCULAR HYPERAEMIA [None]
  - PHARYNGEAL OEDEMA [None]
  - SKIN REACTION [None]
  - DIPLOPIA [None]
  - PYREXIA [None]
  - PRURITUS [None]
  - CHAPPED LIPS [None]
  - LYMPHOEDEMA [None]
  - EYE DISCHARGE [None]
  - LIP DRY [None]
